FAERS Safety Report 24020115 (Version 2)
Quarter: 2024Q3

REPORT INFORMATION
  Report Type: Report from Study
  Country: IT (occurrence: IT)
  Receive Date: 20240627
  Receipt Date: 20240708
  Transmission Date: 20241016
  Serious: Yes (Other)
  Sender: MYLAN
  Company Number: None

PATIENT
  Age: 62 Year
  Sex: Female

DRUGS (2)
  1. PACLITAXEL [Suspect]
     Active Substance: PACLITAXEL
     Indication: Breast cancer stage IV
     Dosage: 150 MILLIGRAM, CYCLE (I CYCLE - THERAPY EVERY 21 DAYS, AT DAYS 1, 8, 15)
     Route: 042
     Dates: start: 20240411, end: 20240411
  2. BEVACIZUMAB [Suspect]
     Active Substance: BEVACIZUMAB
     Indication: Breast cancer stage IV
     Dosage: 740 MILLIGRAM, CYCLE (I CYCLE - THERAPY EVERY 21 DAYS, AT DAYS 1 AND 15)
     Route: 042
     Dates: start: 20240411, end: 20240411

REACTIONS (2)
  - Leukopenia [Recovering/Resolving]
  - Off label use [Recovering/Resolving]

NARRATIVE: CASE EVENT DATE: 20240411
